FAERS Safety Report 7191868-7 (Version None)
Quarter: 2010Q4

REPORT INFORMATION
  Report Type: 
  Country: None (occurrence: None)
  Receive Date: 20101223
  Receipt Date: 20101211
  Transmission Date: 20110411
  Serious: Yes (Other)
  Sender: FDA-Public Use
  Company Number: PHHY2010CA84472

PATIENT
  Sex: Female

DRUGS (6)
  1. ACLASTA [Suspect]
     Indication: OSTEOPOROSIS
     Dosage: UNK
     Dates: start: 20091218
  2. PARIET [Concomitant]
  3. MONOCOR [Concomitant]
  4. SYNTHROID [Concomitant]
  5. ELAVIL [Concomitant]
  6. RANITIDINE [Concomitant]

REACTIONS (1)
  - NERVOUS SYSTEM DISORDER [None]
